FAERS Safety Report 11293702 (Version 1)
Quarter: 2015Q3

REPORT INFORMATION
  Report Type: Spontaneous
  Country: US (occurrence: US)
  Receive Date: 20150722
  Receipt Date: 20150722
  Transmission Date: 20151125
  Serious: No
  Sender: FDA-Public Use
  Company Number: US-GLAXOSMITHKLINE-US2015102757

PATIENT
  Age: 56 Year
  Sex: Female

DRUGS (1)
  1. ABREVA [Suspect]
     Active Substance: DOCOSANOL
     Indication: APHTHOUS ULCER
     Dosage: UNK
     Dates: start: 20150715, end: 20150716

REACTIONS (5)
  - Nausea [Not Recovered/Not Resolved]
  - Productive cough [Not Recovered/Not Resolved]
  - Oral disorder [Not Recovered/Not Resolved]
  - Dysgeusia [Not Recovered/Not Resolved]
  - Drug administration error [Unknown]

NARRATIVE: CASE EVENT DATE: 20150715
